FAERS Safety Report 10097969 (Version 2)
Quarter: 2015Q3

REPORT INFORMATION
  Report Type: Spontaneous
  Country: FR (occurrence: FR)
  Receive Date: 20140423
  Receipt Date: 20150805
  Transmission Date: 20151125
  Serious: Yes (Hospitalization, Other)
  Sender: FDA-Public Use
  Company Number: FR-BRISTOL-MYERS SQUIBB COMPANY-20633574

PATIENT
  Age: 88 Year
  Sex: Female

DRUGS (5)
  1. POTASSIUM CHLORIDE. [Concomitant]
     Active Substance: POTASSIUM CHLORIDE
     Indication: PRODUCT USED FOR UNKNOWN INDICATION
     Route: 065
  2. FUROSEMIDE. [Concomitant]
     Active Substance: FUROSEMIDE
     Indication: PRODUCT USED FOR UNKNOWN INDICATION
     Route: 065
  3. INNOHEP [Concomitant]
     Active Substance: TINZAPARIN SODIUM
     Indication: PRODUCT USED FOR UNKNOWN INDICATION
     Route: 065
  4. BISOPROLOL [Concomitant]
     Active Substance: BISOPROLOL
     Indication: PRODUCT USED FOR UNKNOWN INDICATION
     Route: 065
  5. YERVOY [Suspect]
     Active Substance: IPILIMUMAB
     Indication: PRODUCT USED FOR UNKNOWN INDICATION
     Dosage: 09-JAN-2014 29-JAN-2014 20-FEB-2014 13-MAR-2014 .ONE TO FOURTH COUSE DATE.
     Route: 042
     Dates: start: 20140109, end: 20140313

REACTIONS (7)
  - Arthralgia [Not Recovered/Not Resolved]
  - Hypophysitis [Not Recovered/Not Resolved]
  - Blood cortisol decreased [Unknown]
  - Adrenocorticotropic hormone deficiency [Unknown]
  - Blood luteinising hormone decreased [Recovered/Resolved]
  - Blood thyroid stimulating hormone decreased [Recovered/Resolved]
  - Blood follicle stimulating hormone decreased [Recovered/Resolved]

NARRATIVE: CASE EVENT DATE: 201403
